FAERS Safety Report 5741224-0 (Version None)
Quarter: 2008Q2

REPORT INFORMATION
  Report Type: 
  Country: None (occurrence: None)
  Receive Date: 20080516
  Receipt Date: 20080506
  Transmission Date: 20081010
  Serious: Yes (Other)
  Sender: FDA-Public Use
  Company Number: CA-PFIZER INC-2008040981

PATIENT
  Age: 52 Year
  Sex: Female

DRUGS (5)
  1. CHANTIX [Suspect]
     Route: 048
  2. SYNTHROID [Concomitant]
  3. PREMARIN [Concomitant]
  4. MEDROXYPROGESTERONE ACETATE [Concomitant]
  5. AVAPRO [Concomitant]

REACTIONS (3)
  - OESOPHAGEAL DISORDER [None]
  - SKIN DISORDER [None]
  - THIRST [None]
